FAERS Safety Report 18083951 (Version 1)
Quarter: 2020Q3

REPORT INFORMATION
  Report Type: Spontaneous
  Country: CA (occurrence: CA)
  Receive Date: 20200728
  Receipt Date: 20200728
  Transmission Date: 20201103
  Serious: Yes (Other)
  Sender: FDA-Public Use
  Company Number: CA-ROCHE-2642012

PATIENT
  Age: 26 Year
  Sex: Male
  Weight: 148 kg

DRUGS (10)
  1. ACETAMINOPHEN. [Concomitant]
     Active Substance: ACETAMINOPHEN
     Indication: PREMEDICATION
     Route: 048
  2. RITUXIMAB. [Suspect]
     Active Substance: RITUXIMAB
     Indication: VASCULITIS
     Dosage: 1.0 DAYS
     Route: 041
  3. METHOTREXATE. [Suspect]
     Active Substance: METHOTREXATE
     Indication: PRODUCT USED FOR UNKNOWN INDICATION
     Route: 065
  4. PREDNISONE. [Concomitant]
     Active Substance: PREDNISONE
  5. BENADRYL [Concomitant]
     Active Substance: DIPHENHYDRAMINE HYDROCHLORIDE
     Route: 048
  6. EFFEXOR [Concomitant]
     Active Substance: VENLAFAXINE HYDROCHLORIDE
     Route: 048
  7. AZATHIOPRINE. [Suspect]
     Active Substance: AZATHIOPRINE
     Indication: PRODUCT USED FOR UNKNOWN INDICATION
     Route: 065
  8. DIPHENHYDRAMINE. [Concomitant]
     Active Substance: DIPHENHYDRAMINE
     Indication: PREMEDICATION
     Route: 048
  9. METHYLPREDNISOLONE. [Concomitant]
     Active Substance: METHYLPREDNISOLONE
     Indication: PREMEDICATION
     Route: 042
  10. RITUXIMAB. [Suspect]
     Active Substance: RITUXIMAB
     Indication: GRANULOMATOSIS WITH POLYANGIITIS
     Dosage: 188.0 DAYS
     Route: 042

REACTIONS (20)
  - Alanine aminotransferase increased [Recovered/Resolved]
  - Granulomatosis with polyangiitis [Recovered/Resolved]
  - Investigation abnormal [Recovered/Resolved]
  - Off label use [Unknown]
  - Sinus pain [Recovered/Resolved]
  - Skin ulcer [Recovered/Resolved]
  - Weight increased [Recovered/Resolved]
  - Bronchiectasis [Recovered/Resolved]
  - Cough [Recovered/Resolved]
  - Pulmonary cavitation [Recovered/Resolved]
  - C-reactive protein increased [Recovered/Resolved]
  - Oxygen saturation decreased [Recovered/Resolved]
  - Nodule [Recovered/Resolved]
  - Weight decreased [Recovered/Resolved]
  - Lung disorder [Recovered/Resolved]
  - Productive cough [Recovered/Resolved]
  - Blood pressure increased [Recovered/Resolved]
  - Vasculitis [Recovered/Resolved]
  - Ear disorder [Recovered/Resolved]
  - Heart rate increased [Recovered/Resolved]
